FAERS Safety Report 8312375-1 (Version None)
Quarter: 2012Q2

REPORT INFORMATION
  Report Type: 
  Country: None (occurrence: None)
  Receive Date: 20120425
  Receipt Date: 20120412
  Transmission Date: 20120825
  Serious: Yes (Hospitalization)
  Sender: FDA-Public Use
  Company Number: CH-AMGEN-CHESP2012023767

PATIENT
  Age: 66 Year
  Sex: Female

DRUGS (6)
  1. XANAX [Concomitant]
     Dosage: 0.25 MG, 3X/DAY
     Route: 048
  2. SERTRALINE HYDROCHLORIDE [Concomitant]
     Dosage: 50 MG, 1X/DAY
     Route: 048
  3. ACETAMINOPHEN [Concomitant]
     Dosage: UNK
  4. METHOTREXATE SODIUM [Suspect]
     Indication: RHEUMATOID ARTHRITIS
     Dosage: UNK
     Route: 048
     Dates: end: 20111209
  5. ENBREL [Suspect]
     Indication: RHEUMATOID ARTHRITIS
     Dosage: 50 MG, WEEKLY
     Route: 058
     Dates: end: 20111209
  6. ARICEPT [Concomitant]
     Dosage: 5 MG, 1X/DAY
     Route: 048
     Dates: end: 20120403

REACTIONS (3)
  - AGRANULOCYTOSIS [None]
  - GRANULOCYTOPENIA [None]
  - IRON DEFICIENCY ANAEMIA [None]
